FAERS Safety Report 10384599 (Version 1)
Quarter: 2014Q1

REPORT INFORMATION
  Report Type: Spontaneous
  Country: US (occurrence: None)
  Receive Date: 20140306
  Receipt Date: 20140306
  Transmission Date: 20141002
  Serious: Yes (Hospitalization)
  Sender: FDA-Public Use
  Company Number: 163-21880-13102303

PATIENT
  Age: 66 Year
  Sex: Male

DRUGS (10)
  1. REVLIMID (LENALIDOMIDE) (25 MILLIGRAM, CAPSULES) [Suspect]
     Indication: PLASMA CELL MYELOMA
     Route: 048
     Dates: start: 20130813
  2. VELCADE (BORTEZOMIB) [Concomitant]
  3. DEXAMETHASONE [Concomitant]
  4. ACYCLOVIR (ACICLOVIR) [Concomitant]
  5. METOPROLOL [Concomitant]
  6. RAMIPRIL [Concomitant]
  7. ROSUVASTATIN [Concomitant]
  8. ASPRIN (ACETYLSALICYLIC ACID) [Concomitant]
  9. DIAZEPAM [Concomitant]
  10. LIDOCAINE (POULTICE OR PATCH) [Concomitant]

REACTIONS (2)
  - Bone pain [None]
  - Cytokine storm [None]
